FAERS Safety Report 6076198-9 (Version None)
Quarter: 2009Q1

REPORT INFORMATION
  Report Type: 
  Country: None (occurrence: None)
  Receive Date: 20090212
  Receipt Date: 20090205
  Transmission Date: 20090719
  Serious: Yes (Other)
  Sender: FDA-Public Use
  Company Number: US-PFIZER INC-2009166165

PATIENT
  Sex: Male
  Weight: 63 kg

DRUGS (3)
  1. DEPO-MEDROL [Suspect]
     Indication: MUSCLE SPASMS
     Dates: start: 20090123
  2. DEPO-MEDROL [Suspect]
     Indication: SCIATICA
  3. ULTRAM [Concomitant]

REACTIONS (6)
  - ABASIA [None]
  - BALANCE DISORDER [None]
  - DEPRESSION [None]
  - FEELING ABNORMAL [None]
  - HYPOKINESIA [None]
  - MOOD ALTERED [None]
